FAERS Safety Report 13693552 (Version 1)
Quarter: 2017Q2

REPORT INFORMATION
  Report Type: Spontaneous
  Country: US (occurrence: US)
  Receive Date: 20170627
  Receipt Date: 20170627
  Transmission Date: 20170830
  Serious: Yes (Other)
  Sender: FDA-Public Use
  Company Number: US-WEST-WARD PHARMACEUTICALS CORP.-US-H14001-17-02103

PATIENT
  Sex: Female

DRUGS (1)
  1. ATIVAN [Suspect]
     Active Substance: LORAZEPAM
     Indication: PRODUCT USED FOR UNKNOWN INDICATION
     Route: 065

REACTIONS (8)
  - Amnesia [Unknown]
  - Disorientation [Unknown]
  - Hypersomnia [Unknown]
  - Balance disorder [Unknown]
  - Inner ear disorder [Unknown]
  - Loss of consciousness [Recovered/Resolved]
  - Gait disturbance [Unknown]
  - Ear haemorrhage [Unknown]
